FAERS Safety Report 5664915-9 (Version None)
Quarter: 2008Q1

REPORT INFORMATION
  Report Type: 
  Country: None (occurrence: None)
  Receive Date: 20080314
  Receipt Date: 20080207
  Transmission Date: 20080703
  Serious: Yes (Death)
  Sender: FDA-Public Use
  Company Number: GB-GILEAD-2008-0015307

PATIENT
  Sex: Male

DRUGS (4)
  1. ATRIPLA [Suspect]
     Route: 048
     Dates: start: 20080101
  2. VIREAD [Suspect]
     Dosage: NI
     Route: 048
     Dates: start: 20071001, end: 20080101
  3. EMTRIVA [Suspect]
     Dosage: NI
     Route: 048
     Dates: start: 20071001, end: 20080101
  4. EFAVIRENZ [Suspect]
     Dosage: NI
     Route: 048
     Dates: start: 20071001, end: 20080101

REACTIONS (2)
  - HAEMOLYTIC ANAEMIA [None]
  - HODGKIN'S DISEASE [None]
